FAERS Safety Report 23346164 (Version 1)
Quarter: 2023Q4

REPORT INFORMATION
  Report Type: Spontaneous
  Country: ES (occurrence: ES)
  Receive Date: 20231228
  Receipt Date: 20231228
  Transmission Date: 20240109
  Serious: Yes (Hospitalization)
  Sender: FDA-Public Use
  Company Number: None

PATIENT
  Age: 72 Year
  Sex: Female

DRUGS (3)
  1. TOBRAMYCIN [Suspect]
     Active Substance: TOBRAMYCIN
     Indication: Conjunctivitis
     Dosage: UNK
     Dates: start: 20230622, end: 20230623
  2. ALLOPURINOL [Suspect]
     Active Substance: ALLOPURINOL
     Indication: Hyperuricaemia
     Dosage: 100 MG, Q12H
     Route: 048
     Dates: start: 20230530, end: 20230624
  3. CIPROFLOXACIN HYDROCHLORIDE [Suspect]
     Active Substance: CIPROFLOXACIN HYDROCHLORIDE
     Indication: Conjunctivitis
     Dosage: UNK
     Dates: start: 20230623, end: 20230624

REACTIONS (5)
  - Syncope [Recovered/Resolved]
  - Rash maculo-papular [Recovered/Resolved]
  - Pyrexia [Recovered/Resolved]
  - Pruritus [Recovered/Resolved]
  - Angioedema [Recovered/Resolved]

NARRATIVE: CASE EVENT DATE: 20230623
